FAERS Safety Report 18774166 (Version 1)
Quarter: 2021Q1

REPORT INFORMATION
  Report Type: Spontaneous
  Country: US (occurrence: US)
  Receive Date: 20210122
  Receipt Date: 20210122
  Transmission Date: 20210419
  Serious: Yes (Hospitalization, Other)
  Sender: FDA-Public Use
  Company Number: US-EPICPHARMA-US-2021EPCLIT00007

PATIENT
  Age: 72 Year
  Sex: Male

DRUGS (2)
  1. GABAPENTIN. [Suspect]
     Active Substance: GABAPENTIN
     Indication: PRODUCT USED FOR UNKNOWN INDICATION
     Route: 065
  2. GABAPENTIN. [Suspect]
     Active Substance: GABAPENTIN
     Route: 065

REACTIONS (5)
  - Mental status changes [Recovered/Resolved]
  - Neurotoxicity [Recovered/Resolved]
  - Myoclonus [Recovered/Resolved]
  - Renal impairment [Unknown]
  - Overdose [Unknown]
